FAERS Safety Report 9268918 (Version 1)
Quarter: 2013Q2

REPORT INFORMATION
  Report Type: Report from Study
  Country: FR (occurrence: FR)
  Receive Date: 20130503
  Receipt Date: 20130503
  Transmission Date: 20140414
  Serious: Yes (Death, Life-Threatening, Hospitalization)
  Sender: FDA-Public Use
  Company Number: FR-ROCHE-1216134

PATIENT
  Age: 64 Year
  Sex: Female

DRUGS (2)
  1. AVASTIN [Suspect]
     Indication: COLORECTAL CANCER METASTATIC
     Route: 042
     Dates: start: 20121024
  2. AVASTIN [Suspect]
     Route: 042
     Dates: start: 20121106, end: 20121106

REACTIONS (2)
  - Peritonitis [Fatal]
  - Tumour perforation [Fatal]
